FAERS Safety Report 8959611 (Version 2)
Quarter: 2012Q4

REPORT INFORMATION
  Report Type: 
  Country: IN (occurrence: IN)
  Receive Date: 20121211
  Receipt Date: 20121214
  Transmission Date: 20130627
  Serious: Yes (Hospitalization)
  Sender: FDA-Public Use
  Company Number: PHHY2012IN113804

PATIENT
  Age: 72 Year
  Sex: Female

DRUGS (3)
  1. ACLASTA [Suspect]
     Indication: OSTEOPOROSIS
     Dosage: 5 mg (5mg/100ml), UNK
     Route: 042
     Dates: start: 20121116
  2. ELTROXIN [Concomitant]
     Indication: HYPOTHYROIDISM
     Route: 048
  3. AMLOGAL [Concomitant]
     Indication: HYPERTENSION
     Route: 048

REACTIONS (3)
  - Dislocation of vertebra [Recovering/Resolving]
  - Pain [Recovering/Resolving]
  - Drug ineffective [Unknown]
